FAERS Safety Report 12485446 (Version 1)
Quarter: 2016Q2

REPORT INFORMATION
  Report Type: Spontaneous
  Country: US (occurrence: US)
  Receive Date: 20160621
  Receipt Date: 20160621
  Transmission Date: 20160815
  Serious: No
  Sender: FDA-Public Use
  Company Number: US-SA-2015SA138896

PATIENT
  Age: 5 Year
  Sex: Male
  Weight: 19.5 kg

DRUGS (4)
  1. CEREZYME [Suspect]
     Active Substance: IMIGLUCERASE
     Indication: LIPIDOSIS
     Dosage: DOSE:61.54 UNIT(S)/KILOGRAM BODYWEIGHT
     Route: 041
  2. NORMAL SALINE [Concomitant]
     Active Substance: SODIUM CHLORIDE
     Route: 042
     Dates: start: 20150226
  3. LIDOCAINE. [Concomitant]
     Active Substance: LIDOCAINE
     Route: 061
     Dates: start: 20150226
  4. EPIPEN [Concomitant]
     Active Substance: EPINEPHRINE
     Route: 042
     Dates: start: 20150226

REACTIONS (1)
  - Nasopharyngitis [Unknown]
